FAERS Safety Report 19022205 (Version 2)
Quarter: 2021Q3

REPORT INFORMATION
  Report Type: Spontaneous
  Country: CA (occurrence: CA)
  Receive Date: 20210317
  Receipt Date: 20210924
  Transmission Date: 20211014
  Serious: Yes (Hospitalization)
  Sender: FDA-Public Use
  Company Number: CA-ANIPHARMA-2021-CA-000327

PATIENT
  Sex: Female

DRUGS (1)
  1. CANDESARTAN. [Suspect]
     Active Substance: CANDESARTAN
     Indication: FOETAL EXPOSURE DURING PREGNANCY
     Route: 050

REACTIONS (3)
  - Foetal exposure during pregnancy [Unknown]
  - Ultrasound kidney abnormal [Recovered/Resolved]
  - Ultrasound antenatal screen abnormal [Recovered/Resolved]
